FAERS Safety Report 20264283 (Version 1)
Quarter: 2021Q4

REPORT INFORMATION
  Report Type: Spontaneous
  Country: NL (occurrence: NL)
  Receive Date: 20211231
  Receipt Date: 20211231
  Transmission Date: 20220303
  Serious: Yes (Disabling)
  Sender: FDA-Public Use
  Company Number: None

PATIENT
  Sex: Female
  Weight: 61 kg

DRUGS (5)
  1. CIPROFLOXACIN [Suspect]
     Active Substance: CIPROFLOXACIN
     Indication: Cystitis
     Dosage: 1000 MILLIGRAM DAILY; 2X500, CIPROFLOXACIN TABLET 500MG / BRAND NAME NOT SPECIFIED
     Route: 065
     Dates: start: 20210816, end: 20210905
  2. FENTANYL [Concomitant]
     Active Substance: FENTANYL
     Dosage: 15MG, FENTANYL PLASTER 12UG/HOUR (SANDOZ/1A PHARMA) / BRAND NAME NOT SPECIFIED, THERAPY START AND EN
  3. LOSEC [Concomitant]
     Active Substance: OMEPRAZOLE
     Dosage: 40 MG, OMEPRAZOL TABLET MSR 40MG / LOSEC MUPS TABLET MSR 40MG, THERAPY START AND END DATE: ASKU
  4. OXYCODONE HYDROCHLORIDE [Concomitant]
     Active Substance: OXYCODONE HYDROCHLORIDE
     Dosage: 10 MG, OXYCODONE CAPSULE 10MG / OXYNORM CAPSULE 10MG, THERAPY START AND END DATE: ASKU
  5. CREON [Concomitant]
     Active Substance: PANCRELIPASE AMYLASE\PANCRELIPASE LIPASE\PANCRELIPASE PROTEASE
     Dosage: 25000/40000/1600 FE, AMYLA/LIPA/PROTEA CA MSR (CREO XTRA F+ CREO 40000) / CREON XTRA FORTE CAPSULE M

REACTIONS (5)
  - Pain in extremity [Not Recovered/Not Resolved]
  - Tendon pain [Not Recovered/Not Resolved]
  - Arthralgia [Not Recovered/Not Resolved]
  - Insomnia [Not Recovered/Not Resolved]
  - Feeling of body temperature change [Not Recovered/Not Resolved]
